FAERS Safety Report 23061790 (Version 4)
Quarter: 2023Q4

REPORT INFORMATION
  Report Type: Report from Study
  Country: US (occurrence: None)
  Receive Date: 20231013
  Receipt Date: 20231201
  Transmission Date: 20240110
  Serious: Yes (Other)
  Sender: FDA-Public Use
  Company Number: US-ROCHE-3432818

PATIENT
  Age: 74 Year
  Sex: Female
  Weight: 92 kg

DRUGS (30)
  1. RANIBIZUMAB [Suspect]
     Active Substance: RANIBIZUMAB
     Indication: Diabetic retinal oedema
     Dosage: DOSE OF STUDY DRUG FIRST ADMINISTERED WAS 10 MG/ML.
     Route: 050
     Dates: start: 20200319
  2. RANIBIZUMAB [Suspect]
     Active Substance: RANIBIZUMAB
  3. RANIBIZUMAB [Suspect]
     Active Substance: RANIBIZUMAB
  4. RANIBIZUMAB [Suspect]
     Active Substance: RANIBIZUMAB
  5. RANIBIZUMAB [Suspect]
     Active Substance: RANIBIZUMAB
  6. RANIBIZUMAB [Suspect]
     Active Substance: RANIBIZUMAB
     Dosage: DOSE LAST STUDY DRUG ADMIN PRIOR AE AND SAE 100 MG/ML?START DATE OF MOST RECENT DOSE OF STUDY DRUG P
     Route: 050
  7. RANIBIZUMAB [Suspect]
     Active Substance: RANIBIZUMAB
  8. RANIBIZUMAB [Suspect]
     Active Substance: RANIBIZUMAB
  9. RANIBIZUMAB [Suspect]
     Active Substance: RANIBIZUMAB
  10. RANIBIZUMAB [Suspect]
     Active Substance: RANIBIZUMAB
  11. NOVOLOG [Concomitant]
     Active Substance: INSULIN ASPART
     Indication: Type 2 diabetes mellitus
     Dates: start: 20100319
  12. OXYBUTYNIN [Concomitant]
     Active Substance: OXYBUTYNIN
     Indication: Hypertonic bladder
     Dosage: MEDICATION DOSE 10 MG/ML
     Route: 048
     Dates: start: 20220419
  13. ACETAMINOPHEN [Concomitant]
     Active Substance: ACETAMINOPHEN
     Indication: Pain
     Dosage: MEDICATION DOSE 500 MG/ML
     Route: 048
     Dates: start: 20220616
  14. ATORVASTATIN [Concomitant]
     Active Substance: ATORVASTATIN
     Dates: start: 20220616
  15. CARVEDILOL [Concomitant]
     Active Substance: CARVEDILOL
     Dosage: MEDICATION DOSE 30125 MG/ML
     Route: 048
     Dates: start: 20220616
  16. DOCUSATE SODIUM [Concomitant]
     Active Substance: DOCUSATE SODIUM
     Dosage: MEDICATION DOSE 100 MG/ML
     Route: 048
     Dates: start: 20220616
  17. EFFER-K [Concomitant]
     Dosage: MEDICATION DOSE 20 MG/ML
     Route: 048
     Dates: start: 20220616
  18. JARDIANCE [Concomitant]
     Active Substance: EMPAGLIFLOZIN
     Indication: Diabetes mellitus
     Dosage: MEDICATION DOSE 10MG/ML
     Route: 048
     Dates: start: 20220616
  19. LOSARTAN [Concomitant]
     Active Substance: LOSARTAN
     Indication: Diabetes mellitus
     Dosage: MEDICATION DOSE 50 MG/ML
     Route: 048
     Dates: start: 20220616
  20. METHOCARBAMOL [Concomitant]
     Active Substance: METHOCARBAMOL
     Indication: Intestinal obstruction
     Dosage: MEDICATION DOSE 500 MG/ML
     Route: 048
     Dates: start: 20220616
  21. MIRALAX [Concomitant]
     Active Substance: POLYETHYLENE GLYCOL 3350
     Indication: Intestinal obstruction
     Dosage: MEDICATION DOSE 17MG/ML
     Route: 048
     Dates: start: 20220616
  22. PANTOPRAZOLE [Concomitant]
     Active Substance: PANTOPRAZOLE
     Indication: Intestinal obstruction
     Dosage: MEDICATION DOSE 40 MG/ML
     Route: 048
     Dates: start: 20220616
  23. VAZALORE [Concomitant]
     Active Substance: ASPIRIN
     Indication: Intestinal obstruction
     Dosage: MEDICATION DOSE 81 MG/ML
     Route: 048
     Dates: start: 20220616
  24. OFLOXACIN [Concomitant]
     Active Substance: OFLOXACIN
     Dosage: MEDICATION DOSE 0.3 %
     Route: 047
     Dates: start: 20221023
  25. OZEMPIC [Concomitant]
     Active Substance: SEMAGLUTIDE
     Dosage: MEDICATION DOSE 0.5 %
     Route: 058
     Dates: start: 20230111
  26. ENTRESTO [Concomitant]
     Active Substance: SACUBITRIL\VALSARTAN
     Indication: Hypertension
     Dosage: MEDICATION DOSE 49 MG/ML
     Route: 048
     Dates: start: 20230403
  27. FUROSEMIDE [Concomitant]
     Active Substance: FUROSEMIDE
     Indication: Hypertension
     Dosage: MEDICATION DOSE 20  MG/ML
     Route: 048
     Dates: start: 20230403
  28. RANIBIZUMAB [Concomitant]
     Active Substance: RANIBIZUMAB
     Indication: Macular oedema
     Dosage: DOSE OF STUDY DRUG FIRST ADMINISTERED 6 MG/ML?DOSE LAST STUDY DRUG ADMIN PRIOR AE 6 MG/ML?START DATE
     Route: 050
     Dates: start: 20210322
  29. RANIBIZUMAB [Concomitant]
     Active Substance: RANIBIZUMAB
     Dosage: DOSE: 10 MG/ML, START DATE: 12/OCT/2023, FREQUENCY: PRN
     Route: 050
     Dates: start: 20231012, end: 20231012
  30. RANIBIZUMAB [Concomitant]
     Active Substance: RANIBIZUMAB
     Dosage: DOSE-10 MG/ML.
     Route: 050
     Dates: start: 20231127, end: 20231127

REACTIONS (2)
  - Device issue [Unknown]
  - No adverse event [Unknown]

NARRATIVE: CASE EVENT DATE: 20231002
